FAERS Safety Report 20406088 (Version 1)
Quarter: 2022Q1

REPORT INFORMATION
  Report Type: Spontaneous
  Country: BE (occurrence: BE)
  Receive Date: 20220131
  Receipt Date: 20220131
  Transmission Date: 20220423
  Serious: Yes (Life-Threatening)
  Sender: FDA-Public Use
  Company Number: BE-009507513-2112BEL007685

PATIENT
  Age: 74 Year
  Weight: 95 kg

DRUGS (16)
  1. GENTAMICIN [Suspect]
     Active Substance: GENTAMICIN
     Indication: Staphylococcal sepsis
     Dosage: ONE DOSE OF GENTAMICIN (450 MG)
     Route: 065
  2. RIFAMPIN [Interacting]
     Active Substance: RIFAMPIN
     Indication: Staphylococcal sepsis
     Dosage: 300 MG Q8H, TEMPORARILY WITHHELD FOR 3 DAYS
     Route: 042
  3. RIFAMPIN [Interacting]
     Active Substance: RIFAMPIN
     Dosage: 300 MG Q8H (RESTARTED AFTERWARDS)
     Route: 042
  4. PIPERACILLIN AND TAZOBACTAM [Suspect]
     Active Substance: PIPERACILLIN SODIUM\TAZOBACTAM SODIUM
     Indication: Antibiotic therapy
     Dosage: 4 G Q6H
     Route: 065
  5. VORICONAZOLE [Interacting]
     Active Substance: VORICONAZOLE
     Indication: Bronchopulmonary aspergillosis
     Dosage: LOADING DOSE OF 600 MILLIGRAM, Q12H ON THE FIRST DAY
     Route: 065
  6. VORICONAZOLE [Interacting]
     Active Substance: VORICONAZOLE
     Dosage: MAINTENANCE DOSE OF 400 MG Q12H AFTERWARDS
     Route: 065
  7. RIFABUTIN [Suspect]
     Active Substance: RIFABUTIN
     Indication: Antibiotic therapy
     Dosage: UNK
     Route: 048
  8. RIFABUTIN [Suspect]
     Active Substance: RIFABUTIN
     Dosage: UNK, PLASMA CONCENTRATION OF 0.23 MG/L (24 H AFTER PREVIOUS ADMINISTRATION) WAS MEASURED
     Route: 065
  9. CASPOFUNGIN [Suspect]
     Active Substance: CASPOFUNGIN
     Indication: Bronchopulmonary aspergillosis
     Dosage: 70 MILLIGRAM, Q24H
     Route: 065
  10. ISAVUCONAZOLE [Suspect]
     Active Substance: ISAVUCONAZOLE
     Indication: Bronchopulmonary aspergillosis
     Dosage: LOADING DOSE: 200 MG Q8H
     Route: 042
  11. ISAVUCONAZOLE [Suspect]
     Active Substance: ISAVUCONAZOLE
     Dosage: MAINTENANCE DOSE 200 MG Q24H (FROM DAY 3); TROUGH CONCENTRATION: 0.3 MG/L ON DAY 5
     Route: 042
  12. ISAVUCONAZOLE [Suspect]
     Active Substance: ISAVUCONAZOLE
     Dosage: 300 MG (SINCE DAY 8); TROUGH CONCENTRATION: 0.5 MG/L ON DAY 12
     Route: 042
  13. ISAVUCONAZOLE [Suspect]
     Active Substance: ISAVUCONAZOLE
     Dosage: 500 MG (SINCE DAY 14); TROUGH CONCENTRATION: 0.9 MG/L ON DAY 20
     Route: 042
  14. FLUCLOXACILLIN [Suspect]
     Active Substance: FLUCLOXACILLIN
     Indication: Staphylococcal sepsis
     Dosage: 2 GRAM, Q4H
     Route: 042
  15. FLUCLOXACILLIN [Suspect]
     Active Substance: FLUCLOXACILLIN
     Indication: Antibiotic therapy
  16. AMPHOTERICIN B [Suspect]
     Active Substance: AMPHOTERICIN B
     Indication: Bronchopulmonary aspergillosis
     Dosage: 300 MG Q24H
     Route: 042

REACTIONS (1)
  - Therapy non-responder [Unknown]
